FAERS Safety Report 4829298-2 (Version None)
Quarter: 2005Q4

REPORT INFORMATION
  Report Type: 
  Country: None (occurrence: None)
  Receive Date: 20051116
  Receipt Date: 20051110
  Transmission Date: 20060501
  Serious: Yes (Hospitalization)
  Sender: FDA-Public Use
  Company Number: DE-GLAXOSMITHKLINE-D0047930A

PATIENT
  Age: 6 Year
  Sex: Male

DRUGS (1)
  1. FLUTIDE 125 [Suspect]
     Indication: RESPIRATORY TRACT INFECTION
     Dosage: 3PUFF PER DAY
     Route: 055
     Dates: start: 20020101

REACTIONS (7)
  - CROUP INFECTIOUS [None]
  - DYSKINESIA [None]
  - FALL [None]
  - GAIT DISTURBANCE [None]
  - HEAD INJURY [None]
  - NERVOUSNESS [None]
  - RESTLESSNESS [None]
